FAERS Safety Report 6972273-2 (Version None)
Quarter: 2010Q3

REPORT INFORMATION
  Report Type: 
  Country: None (occurrence: None)
  Receive Date: 20100909
  Receipt Date: 20100826
  Transmission Date: 20110219
  Serious: Yes (Hospitalization)
  Sender: FDA-Public Use
  Company Number: FR-ELI_LILLY_AND_COMPANY-FR201006006715

PATIENT
  Age: 82 Year
  Sex: Female
  Weight: 31 kg

DRUGS (3)
  1. FORTEO [Suspect]
     Indication: OSTEOPOROSIS
     Dosage: 20 UG, DAILY (1/D)
     Route: 058
     Dates: start: 20091105, end: 20100610
  2. DIGITALINE NATIVELLE [Concomitant]
  3. PREVISCAN [Concomitant]

REACTIONS (2)
  - TACHYCARDIA [None]
  - THYROID DISORDER [None]
